FAERS Safety Report 16022413 (Version 1)
Quarter: 2019Q2

REPORT INFORMATION
  Report Type: Spontaneous
  Country: US (occurrence: US)
  Receive Date: 20190301
  Receipt Date: 20190301
  Transmission Date: 20190711
  Serious: Yes (Other)
  Sender: FDA-Public Use
  Company Number: None

PATIENT
  Age: 30 Year
  Sex: Female
  Weight: 94.5 kg

DRUGS (6)
  1. LEVOTHYROXINE. [Concomitant]
     Active Substance: LEVOTHYROXINE
  2. CALCIUM [Concomitant]
     Active Substance: CALCIUM
  3. ROCEPHIN [Suspect]
     Active Substance: CEFTRIAXONE SODIUM
     Indication: PNEUMONIA
     Dosage: ?          QUANTITY:1 INJECTION(S);OTHER FREQUENCY:ONCE;OTHER ROUTE:INJECTION IN THE LEFT GLUTEUS?
     Dates: start: 20170516
  4. VITAMIN D3 [Concomitant]
     Active Substance: CHOLECALCIFEROL
  5. BETA CAROTENE [Concomitant]
  6. MARLISSA [Concomitant]
     Active Substance: ETHINYL ESTRADIOL\LEVONORGESTREL

REACTIONS (6)
  - Scar [None]
  - Dermatitis contact [None]
  - Drug hypersensitivity [None]
  - Muscular weakness [None]
  - Abscess [None]
  - Recalled product administered [None]

NARRATIVE: CASE EVENT DATE: 20170530
